FAERS Safety Report 7224599-5 (Version None)
Quarter: 2011Q1

REPORT INFORMATION
  Report Type: 
  Country: None (occurrence: None)
  Receive Date: 20110103
  Receipt Date: 20101217
  Transmission Date: 20110831
  Serious: Yes (Death, Hospitalization)
  Sender: FDA-Public Use
  Company Number: 2010005544

PATIENT
  Age: 64 Year
  Sex: Female

DRUGS (5)
  1. LBH589 (PANOBINOSTAT) [Suspect]
     Indication: GASTRIC CANCER STAGE IV
     Dosage: 20 MG, 4 X PER 21 DAY, ORAL
     Route: 048
     Dates: start: 20101011, end: 20101118
  2. MAGNESIUM OXIDE [Concomitant]
  3. LABH 589 (PANOBINOSTAT) [Suspect]
  4. ERLOTINIB HYDROCHLORIDE [Suspect]
     Indication: GASTRIC CANCER STAGE IV
     Dosage: 100 MG, DAILY, ORAL
     Route: 048
     Dates: start: 20101004, end: 20101118
  5. ZOFRAN [Concomitant]

REACTIONS (9)
  - VOMITING [None]
  - BLOOD SODIUM DECREASED [None]
  - NAUSEA [None]
  - DEHYDRATION [None]
  - BLOOD BILIRUBIN INCREASED [None]
  - GASTRIC CANCER STAGE IV [None]
  - BLOOD UREA INCREASED [None]
  - NEOPLASM MALIGNANT [None]
  - BLOOD ALKALINE PHOSPHATASE INCREASED [None]
